FAERS Safety Report 5762957-6 (Version None)
Quarter: 2008Q2

REPORT INFORMATION
  Report Type: 
  Country: None (occurrence: None)
  Receive Date: 20080609
  Receipt Date: 20080528
  Transmission Date: 20081010
  Serious: Yes (Other)
  Sender: FDA-Public Use
  Company Number: YE-ROCHE-567003

PATIENT
  Age: 47 Year
  Sex: Male

DRUGS (4)
  1. PEGASYS [Suspect]
     Indication: DRUG USE FOR UNKNOWN INDICATION
     Route: 058
     Dates: start: 20080410, end: 20080415
  2. PEGASYS [Suspect]
     Route: 058
     Dates: start: 20080417, end: 20080421
  3. PEGASYS [Suspect]
     Route: 058
     Dates: start: 20080424, end: 20080430
  4. PEGASYS [Suspect]
     Route: 058
     Dates: start: 20080508, end: 20080529

REACTIONS (1)
  - PERICARDITIS [None]
